FAERS Safety Report 9774750 (Version 2)
Quarter: 2014Q1

REPORT INFORMATION
  Report Type: Spontaneous
  Country: US (occurrence: US)
  Receive Date: 20131220
  Receipt Date: 20140124
  Transmission Date: 20141002
  Serious: No
  Sender: FDA-Public Use
  Company Number: US-PFIZER INC-2013363998

PATIENT
  Sex: Female

DRUGS (4)
  1. NORVASC [Suspect]
     Dosage: 10 MG, UNK
  2. ARTHROTEC [Suspect]
     Dosage: 50/200MG, UNK
  3. LIPITOR [Suspect]
     Dosage: 20 MG, UNK
  4. SYNTHROID [Suspect]
     Dosage: 50 MG, UNK

REACTIONS (1)
  - Dyspnoea [Unknown]
